FAERS Safety Report 11452765 (Version 1)
Quarter: 2015Q3

REPORT INFORMATION
  Report Type: Spontaneous
  Country: US (occurrence: US)
  Receive Date: 20150903
  Receipt Date: 20150903
  Transmission Date: 20151125
  Serious: Yes (Hospitalization)
  Sender: FDA-Public Use
  Company Number: US-ROCHE-1054459

PATIENT
  Sex: Female

DRUGS (3)
  1. RIBAVIRIN. [Suspect]
     Active Substance: RIBAVIRIN
     Indication: CHRONIC HEPATITIS C
     Route: 048
     Dates: start: 20120220
  2. TELAPREVIR [Suspect]
     Active Substance: TELAPREVIR
     Indication: CHRONIC HEPATITIS C
     Dosage: ROUTE, DOSE, FORM AND FREQUENCY: NOT REPORTED
     Route: 065
  3. PEGASYS [Suspect]
     Active Substance: PEGINTERFERON ALFA-2A
     Indication: CHRONIC HEPATITIS C
     Route: 058
     Dates: start: 20120220

REACTIONS (12)
  - Pollakiuria [Unknown]
  - Influenza like illness [Unknown]
  - Peripheral swelling [Unknown]
  - Laceration [Unknown]
  - Nausea [Unknown]
  - Swelling face [Unknown]
  - Dehydration [Unknown]
  - Injury associated with device [Recovering/Resolving]
  - Sinusitis [Unknown]
  - Fatigue [Unknown]
  - Blood sodium decreased [Unknown]
  - Limb injury [Unknown]
